FAERS Safety Report 5900485-5 (Version None)
Quarter: 2008Q3

REPORT INFORMATION
  Report Type: 
  Country: None (occurrence: None)
  Receive Date: 20080926
  Receipt Date: 20080924
  Transmission Date: 20090109
  Serious: Yes (Hospitalization)
  Sender: FDA-Public Use
  Company Number: US-ROXANE LABORATORIES, INC.-2008-RO-00076RO

PATIENT
  Sex: Female

DRUGS (10)
  1. METHADONE HCL [Suspect]
     Indication: PAIN
     Dosage: 15MG
     Route: 048
     Dates: start: 20040101
  2. METHADONE HCL [Suspect]
     Dosage: 30MG
     Route: 048
     Dates: end: 20061001
  3. KADIAN [Concomitant]
  4. NEURONTIN [Concomitant]
  5. ZANAFLEX [Concomitant]
  6. CLONOPIN [Concomitant]
  7. DOXEPIN HCL [Concomitant]
  8. PROZAC [Concomitant]
  9. MAXALT [Concomitant]
     Indication: MIGRAINE
  10. IRRITABLE BOWEL SYNDROME MEDICATION [Concomitant]
     Indication: IRRITABLE BOWEL SYNDROME

REACTIONS (5)
  - ACTIVITIES OF DAILY LIVING IMPAIRED [None]
  - DENTAL CARIES [None]
  - DETOXIFICATION [None]
  - DRUG LEVEL ABOVE THERAPEUTIC [None]
  - LOSS OF CONSCIOUSNESS [None]
